FAERS Safety Report 6978274-2 (Version None)
Quarter: 2010Q3

REPORT INFORMATION
  Report Type: 
  Country: None (occurrence: None)
  Receive Date: 20100913
  Receipt Date: 20100901
  Transmission Date: 20110219
  Serious: Yes (Other)
  Sender: FDA-Public Use
  Company Number: PHHY2010JP58079

PATIENT
  Sex: Female

DRUGS (2)
  1. NEORAL [Suspect]
     Indication: APLASIA PURE RED CELL
     Dosage: 70 MG DAILY
     Route: 048
  2. NEORAL [Suspect]
     Route: 048

REACTIONS (6)
  - FALL [None]
  - INFECTION [None]
  - POSTOPERATIVE WOUND INFECTION [None]
  - SEPSIS [None]
  - SURGERY [None]
  - URINARY TRACT INFECTION [None]
